FAERS Safety Report 7391794-4 (Version None)
Quarter: 2011Q2

REPORT INFORMATION
  Report Type: 
  Country: None (occurrence: None)
  Receive Date: 20110404
  Receipt Date: 20110330
  Transmission Date: 20111010
  Serious: Yes (Hospitalization)
  Sender: FDA-Public Use
  Company Number: CZ-ROCHE-765353

PATIENT
  Sex: Male
  Weight: 102 kg

DRUGS (2)
  1. TOCILIZUMAB [Suspect]
     Route: 042
     Dates: start: 20100203, end: 20110208
  2. TOCILIZUMAB [Suspect]
     Route: 042
     Dates: start: 20110214

REACTIONS (2)
  - ENTEROCOLITIS [None]
  - LARGE INTESTINE PERFORATION [None]
